FAERS Safety Report 7005882-5 (Version None)
Quarter: 2010Q3

REPORT INFORMATION
  Report Type: 
  Country: None (occurrence: None)
  Receive Date: 20100921
  Receipt Date: 20100910
  Transmission Date: 20110219
  Serious: Yes (Hospitalization)
  Sender: FDA-Public Use
  Company Number: US-JNJFOC-20100904125

PATIENT
  Sex: Female
  Weight: 74.84 kg

DRUGS (4)
  1. STELARA [Suspect]
     Indication: PSORIASIS
     Dosage: THIS WAS PATIENT'S FIRST DOSE OF USTEKINUMAB.
     Route: 058
  2. FORTAMET [Concomitant]
     Indication: POLYCYSTIC OVARIES
  3. YASMIN [Concomitant]
     Route: 048
  4. WELLBUTRIN XL [Concomitant]
     Indication: DEPRESSION
     Route: 048

REACTIONS (2)
  - ANGIOEDEMA [None]
  - THROMBOSIS [None]
